FAERS Safety Report 9328808 (Version 1)
Quarter: 2013Q2

REPORT INFORMATION
  Report Type: Spontaneous
  Country: US (occurrence: US)
  Receive Date: 20130604
  Receipt Date: 20130604
  Transmission Date: 20140414
  Serious: No
  Sender: FDA-Public Use
  Company Number: US-SANOFI-AVENTIS-2013SA014739

PATIENT
  Sex: Female

DRUGS (2)
  1. LANTUS [Suspect]
  2. NOVOLOG [Concomitant]

REACTIONS (3)
  - Local swelling [Unknown]
  - Oedema peripheral [Unknown]
  - Pruritus generalised [Unknown]
